FAERS Safety Report 9464926 (Version 3)
Quarter: 2014Q1

REPORT INFORMATION
  Report Type: Spontaneous
  Country: US (occurrence: US)
  Receive Date: 20130819
  Receipt Date: 20140127
  Transmission Date: 20141002
  Serious: Yes (Death, Hospitalization)
  Sender: FDA-Public Use
  Company Number: US-BRISTOL-MYERS SQUIBB COMPANY-19182161

PATIENT
  Age: 59 Year
  Sex: Female

DRUGS (18)
  1. BYETTA [Suspect]
     Indication: TYPE 2 DIABETES MELLITUS
     Dates: start: 20070307, end: 20091122
  2. DILAUDID [Concomitant]
  3. LEVEMIR [Concomitant]
     Dosage: 1DF: 15 UNITS AT NIGHT
  4. LEVOTHYROXINE [Concomitant]
  5. LOVASTATIN [Concomitant]
  6. FISH OIL [Concomitant]
  7. TRICOR [Concomitant]
  8. BUPROPION [Concomitant]
  9. SERTRALINE [Concomitant]
  10. TRAVATAN [Concomitant]
     Route: 047
  11. CHOLESTYRAMINE [Concomitant]
  12. METHADONE [Concomitant]
     Route: 048
  13. NOVOLOG [Concomitant]
  14. INSULIN [Concomitant]
  15. METFORMIN [Concomitant]
  16. MULTIVITAMIN [Concomitant]
  17. NAPROXEN [Concomitant]
  18. RAMIPRIL [Concomitant]

REACTIONS (1)
  - Pancreatic carcinoma metastatic [Fatal]
